FAERS Safety Report 5022020-9 (Version None)
Quarter: 2006Q2

REPORT INFORMATION
  Report Type: 
  Country: None (occurrence: None)
  Receive Date: 20060609
  Receipt Date: 20060602
  Transmission Date: 20061013
  Serious: Yes (Hospitalization)
  Sender: FDA-Public Use
  Company Number: ES-SP-2006-01353

PATIENT
  Age: 65 Year
  Sex: Male

DRUGS (3)
  1. IMMUCYST [Suspect]
     Indication: BLADDER CANCER
     Dosage: SUSPENSION, 50 ML
     Route: 043
     Dates: start: 20051202
  2. IMMUCYST [Suspect]
     Route: 043
     Dates: start: 20051209
  3. IMMUCYST [Suspect]
     Route: 043
     Dates: start: 20051216

REACTIONS (6)
  - ANOREXIA [None]
  - ASTHENIA [None]
  - CHEST PAIN [None]
  - DISSEMINATED TUBERCULOSIS [None]
  - DYSPNOEA [None]
  - PYREXIA [None]
